FAERS Safety Report 5928323-5 (Version None)
Quarter: 2008Q4

REPORT INFORMATION
  Report Type: 
  Country: None (occurrence: None)
  Receive Date: 20081021
  Receipt Date: 20081006
  Transmission Date: 20090506
  Serious: Yes (Life-Threatening, Hospitalization)
  Sender: FDA-Public Use
  Company Number: 2008S1018317

PATIENT
  Age: 72 Year
  Sex: Male

DRUGS (16)
  1. SIMVASTATIN [Suspect]
     Indication: HYPERCHOLESTEROLAEMIA
     Dosage: 80 MG; DAILY; ORAL
     Route: 048
     Dates: start: 20080301
  2. LISINOPRIL [Suspect]
     Indication: HYPERTENSION
     Dosage: 20 MG; DAILY; ORAL
     Route: 048
     Dates: start: 20041201, end: 20080930
  3. AMOXICILLIN + CLAVULANATE POTASSIUM [Suspect]
     Indication: TOOTH ABSCESS
     Dosage: 625 MG; 3 TIMES A DAY
     Dates: start: 20080928, end: 20080930
  4. ERYTHROMYCIN [Suspect]
     Indication: TOOTH ABSCESS
     Dosage: 250 MG; Q6H; ORAL
     Route: 048
     Dates: start: 20080925, end: 20080928
  5. CANDESARTAN CILEXETIL [Suspect]
     Indication: HYPERTENSION
     Dosage: 8 MG;DAILY;ORAL
     Route: 048
     Dates: start: 20051101
  6. ADIZEM-XL [Concomitant]
  7. ALLOPURINOL [Concomitant]
  8. EZETIMIBE [Concomitant]
  9. FUROSEMIDE [Concomitant]
  10. GLIMEPIRIDE [Concomitant]
  11. LEVOTHYROXINE SODIUM [Concomitant]
  12. METFORMIN HYDROCHLORIDE [Concomitant]
  13. NEBIVOLOL HCL [Concomitant]
  14. PIOGLITAZONE HYDROCHLORIDE [Concomitant]
  15. WARFARIN SODIUM [Concomitant]
  16. DIGOXIN [Concomitant]

REACTIONS (6)
  - ACUTE RESPIRATORY DISTRESS SYNDROME [None]
  - ANGIOEDEMA [None]
  - DYSPHONIA [None]
  - HYPERCHOLESTEROLAEMIA [None]
  - OROPHARYNGEAL PAIN [None]
  - TOOTH ABSCESS [None]
